FAERS Safety Report 18536394 (Version 2)
Quarter: 2021Q2

REPORT INFORMATION
  Report Type: Spontaneous
  Country: JP (occurrence: JP)
  Receive Date: 20201123
  Receipt Date: 20210624
  Transmission Date: 20210717
  Serious: Yes (Hospitalization, Other)
  Sender: FDA-Public Use
  Company Number: JP-PFIZER INC-2020460016

PATIENT
  Age: 31 Year
  Sex: Female

DRUGS (3)
  1. CELECOX [Suspect]
     Active Substance: CELECOXIB
     Indication: PYREXIA
  2. ACELIO [Suspect]
     Active Substance: ACETAMINOPHEN
     Dosage: 1000 MG/DAY, UNKNOWN FREQ.
     Route: 042
     Dates: start: 20180815, end: 20180815
  3. CELECOX [Suspect]
     Active Substance: CELECOXIB
     Indication: HEADACHE
     Dosage: 100 MG, 2X/DAY
     Route: 048
     Dates: start: 20180816, end: 20180819

REACTIONS (2)
  - Toxic epidermal necrolysis [Recovered/Resolved]
  - Off label use [Unknown]

NARRATIVE: CASE EVENT DATE: 20180816
